FAERS Safety Report 10139760 (Version 3)
Quarter: 2014Q2

REPORT INFORMATION
  Report Type: Spontaneous
  Country: IT (occurrence: IT)
  Receive Date: 20140429
  Receipt Date: 20140603
  Transmission Date: 20141212
  Serious: Yes (Other)
  Sender: FDA-Public Use
  Company Number: IT-SA-2014SA052185

PATIENT
  Age: 78 Year
  Sex: Male

DRUGS (9)
  1. REPAGLINIDE [Suspect]
     Indication: DIABETES MELLITUS
     Route: 048
     Dates: start: 20140110, end: 20140115
  2. LASIX [Suspect]
     Indication: CARDIAC FAILURE
     Dosage: STRENGTH: 500 MG
     Route: 048
     Dates: start: 20140103, end: 20140113
  3. ISOCOLAN [Suspect]
     Indication: SURGERY
     Dosage: DOSE:16 UNIT(S)
     Route: 048
     Dates: start: 20140113, end: 20140113
  4. LUVION [Suspect]
     Indication: PRODUCT USED FOR UNKNOWN INDICATION
     Route: 048
     Dates: start: 20140103, end: 20140115
  5. ZAROXOLYN [Suspect]
     Indication: CARDIAC FAILURE
     Route: 048
     Dates: start: 20140111, end: 20140113
  6. IPRATROPIUM BROMIDE [Concomitant]
  7. TOP-NITRO [Concomitant]
  8. EPREX [Concomitant]
  9. LANSOX [Concomitant]

REACTIONS (2)
  - Renal failure chronic [Recovered/Resolved]
  - Blood creatinine increased [Recovered/Resolved]
